FAERS Safety Report 16890232 (Version 1)
Quarter: 2019Q4

REPORT INFORMATION
  Report Type: Spontaneous
  Country: SG (occurrence: SG)
  Receive Date: 20191007
  Receipt Date: 20191007
  Transmission Date: 20200122
  Serious: Yes (Other)
  Sender: FDA-Public Use
  Company Number: SG-ROCHE-2419498

PATIENT
  Age: 65 Year
  Sex: Female
  Weight: 52.4 kg

DRUGS (2)
  1. PARACETAMOL [Concomitant]
     Active Substance: ACETAMINOPHEN
     Indication: PREMEDICATION
     Dosage: CYCLICAL
     Route: 048
     Dates: start: 20190718
  2. HERCEPTIN [Suspect]
     Active Substance: TRASTUZUMAB
     Indication: NEOPLASM
     Dosage: CYCLICAL
     Route: 041
     Dates: start: 20190718

REACTIONS (3)
  - Chills [Recovered/Resolved]
  - Blood pressure measurement [Recovered/Resolved]
  - Heart rate [Recovered/Resolved]

NARRATIVE: CASE EVENT DATE: 20190718
